FAERS Safety Report 18970156 (Version 4)
Quarter: 2021Q1

REPORT INFORMATION
  Report Type: Spontaneous
  Country: IE (occurrence: IE)
  Receive Date: 20210304
  Receipt Date: 20210325
  Transmission Date: 20210420
  Serious: Yes (Hospitalization, Other)
  Sender: FDA-Public Use
  Company Number: IE-ORGANON-2002IRL009299

PATIENT
  Age: 45 Year
  Sex: Female

DRUGS (3)
  1. PUREGON (FOLLITROPIN BETA) [Suspect]
     Dosage: 900 INTERNATIONAL UNIT (ALSO REPORTED AS 0.8 ML), UNK; PKGID=70041522?00?1
  2. PUREGON (FOLLITROPIN BETA) [Suspect]
  3. ZANTAC [Concomitant]
     Active Substance: RANITIDINE HYDROCHLORIDE
     Dosage: UNK

REACTIONS (12)
  - Dyspnoea [Unknown]
  - Product identification number issue [Unknown]
  - Product expiration date issue [Unknown]
  - Arrhythmia [Unknown]
  - Malaise [Unknown]
  - Hepatic pain [Unknown]
  - Adverse event [Unknown]
  - Fatigue [Unknown]
  - Nausea [Unknown]
  - Hospitalisation [Unknown]
  - Malaise [Unknown]
  - Abdominal pain [Unknown]

NARRATIVE: CASE EVENT DATE: 201909
